FAERS Safety Report 7026640-1 (Version None)
Quarter: 2010Q4

REPORT INFORMATION
  Report Type: 
  Country: None (occurrence: None)
  Receive Date: 20101004
  Receipt Date: 20100927
  Transmission Date: 20110411
  Serious: Yes (Congenital Anomaly, Other)
  Sender: FDA-Public Use
  Company Number: NL-TEVA-249863USA

PATIENT
  Sex: Male

DRUGS (1)
  1. PIMOZIDE TABLETS [Suspect]
     Indication: DRUG EXPOSURE DURING PREGNANCY
     Route: 065

REACTIONS (3)
  - CARDIAC VALVE DISEASE [None]
  - PYELONEPHRITIS [None]
  - RENAL FAILURE [None]
